FAERS Safety Report 25091039 (Version 1)
Quarter: 2025Q1

REPORT INFORMATION
  Report Type: Spontaneous
  Country: DE (occurrence: DE)
  Receive Date: 20250318
  Receipt Date: 20250318
  Transmission Date: 20250408
  Serious: Yes (Other)
  Sender: SANDOZ
  Company Number: DE-SANDOZ-SDZ2025DE016475

PATIENT
  Age: 28 Year
  Sex: Female

DRUGS (2)
  1. NATALIZUMAB [Suspect]
     Active Substance: NATALIZUMAB
     Indication: Susac^s syndrome
     Route: 065
     Dates: start: 202309
  2. PREDNISOLONE [Suspect]
     Active Substance: PREDNISOLONE
     Indication: Susac^s syndrome
     Dosage: 250 MG, QD
     Route: 048
     Dates: start: 202209

REACTIONS (3)
  - Susac^s syndrome [Unknown]
  - Disease recurrence [Unknown]
  - Off label use [Unknown]

NARRATIVE: CASE EVENT DATE: 20240701
